FAERS Safety Report 18446870 (Version 1)
Quarter: 2020Q4

REPORT INFORMATION
  Report Type: Spontaneous
  Country: PL (occurrence: PL)
  Receive Date: 20201030
  Receipt Date: 20201030
  Transmission Date: 20210114
  Serious: Yes (Other)
  Sender: FDA-Public Use
  Company Number: PL-AMGEN-POLSP2020171171

PATIENT
  Age: 75 Year
  Sex: Female

DRUGS (4)
  1. CALCIUM [Concomitant]
     Active Substance: CALCIUM
     Dosage: 1000 MILLIGRAM, QD
  2. VIT D [Concomitant]
     Active Substance: VITAMIN D NOS
     Dosage: 2000 UNIT, QD
  3. PROLIA [Suspect]
     Active Substance: DENOSUMAB
     Indication: OSTEOPOROSIS
     Dosage: 60 MILLIGRAM, Q6MO
     Route: 058
  4. VIT D [Concomitant]
     Active Substance: VITAMIN D NOS
     Dosage: 4000 UNIT, QD

REACTIONS (2)
  - Bone density decreased [Recovering/Resolving]
  - Cerebrovascular accident [Unknown]
